FAERS Safety Report 9024994 (Version 1)
Quarter: 2013Q1

REPORT INFORMATION
  Report Type: Spontaneous
  Country: US (occurrence: US)
  Receive Date: 20130121
  Receipt Date: 20130121
  Transmission Date: 20140127
  Serious: Yes (Hospitalization)
  Sender: FDA-Public Use
  Company Number: US-BAYER-2013-005099

PATIENT
  Age: 23 Year
  Sex: Female

DRUGS (3)
  1. OCELLA [Suspect]
  2. PREDNISONE [Concomitant]
     Dosage: 10 MG, DAILY
     Dates: start: 20110601
  3. DILAUDID [Concomitant]

REACTIONS (2)
  - Jugular vein thrombosis [Recovered/Resolved]
  - Intracranial venous sinus thrombosis [Recovered/Resolved]
